FAERS Safety Report 9899542 (Version 1)
Quarter: 2014Q1

REPORT INFORMATION
  Report Type: Spontaneous
  Country: US (occurrence: US)
  Receive Date: 20140214
  Receipt Date: 20140214
  Transmission Date: 20141002
  Serious: No
  Sender: FDA-Public Use
  Company Number: US-009507513-1402USA004867

PATIENT
  Age: 25 Year
  Sex: Male

DRUGS (3)
  1. INVANZ [Suspect]
     Indication: INFECTION
     Dosage: 1 G, 1 STANDARD DOSE OF 1
     Route: 042
     Dates: start: 2014, end: 2014
  2. INVANZ [Suspect]
     Indication: COLONIC ABSCESS
  3. FLAGYL [Concomitant]
     Indication: INFECTION

REACTIONS (2)
  - White blood cell count increased [Recovering/Resolving]
  - No therapeutic response [Unknown]
